FAERS Safety Report 12742154 (Version 1)
Quarter: 2016Q3

REPORT INFORMATION
  Report Type: Spontaneous
  Country: US (occurrence: US)
  Receive Date: 20160913
  Receipt Date: 20160913
  Transmission Date: 20161109
  Serious: No
  Sender: FDA-Public Use
  Company Number: None

PATIENT
  Age: 69 Year

DRUGS (13)
  1. KETOCONAZOLE 2% SHAMPOO [Suspect]
     Active Substance: KETOCONAZOLE
     Indication: FUNGAL SKIN INFECTION
     Dosage: KETOCONAZOLE 2% SHAMPOO - LATHER 5 MIN - RINSE?1 DAILY?SKIN HEAD - TOPICAL
     Route: 061
     Dates: start: 20160331, end: 20160902
  2. NEOMYCIN [Concomitant]
     Active Substance: NEOMYCIN
  3. ARTICAINE [Concomitant]
     Active Substance: ARTICAINE
  4. CLONIDINE. [Concomitant]
     Active Substance: CLONIDINE
  5. THERAGRAN M [Concomitant]
     Active Substance: VITAMINS
  6. PREMIER 50 PLUS [Concomitant]
  7. LEVOXYL [Concomitant]
     Active Substance: LEVOTHYROXINE SODIUM
  8. FORMALDEHYDE. [Concomitant]
     Active Substance: FORMALDEHYDE
  9. CIPROFLOXACIN. [Concomitant]
     Active Substance: CIPROFLOXACIN
  10. D3 1000 [Concomitant]
  11. CRANBERRY 4200 [Concomitant]
  12. MINOCYCLINE [Concomitant]
     Active Substance: MINOCYCLINE\MINOCYCLINE HYDROCHLORIDE
  13. TETRACYOLINE [Concomitant]

REACTIONS (6)
  - Dysphagia [None]
  - Otorrhoea [None]
  - Pruritus generalised [None]
  - Blister [None]
  - Local swelling [None]
  - Rash [None]

NARRATIVE: CASE EVENT DATE: 20160831
